FAERS Safety Report 7604263-0 (Version None)
Quarter: 2011Q2

REPORT INFORMATION
  Report Type: 
  Country: None (occurrence: None)
  Receive Date: 20110630
  Receipt Date: 20110617
  Transmission Date: 20111010
  Serious: Yes (Congenital Anomaly, Other)
  Sender: FDA-Public Use
  Company Number: 2010MA004953

PATIENT
  Sex: Female

DRUGS (5)
  1. VIT B, IN COMBINATION WITH VITAMIN B6 AND B12 (VIT B1, IN COMBINATION [Suspect]
     Dates: start: 20100301
  2. PROPRANOLOL HCL [Suspect]
     Indication: DRUG EXPOSURE DURING PREGNANCY
     Dosage: TPL
     Route: 064
  3. VENLAFAXINE HYDROCHLORIDE [Suspect]
     Dosage: TPL
     Route: 064
  4. CAMPRAL [Suspect]
     Dosage: TPL
     Route: 064
     Dates: start: 20100301, end: 20100701
  5. THIAMINE (THIAMINE) [Suspect]
     Dates: start: 20100301

REACTIONS (9)
  - MATERNAL DRUGS AFFECTING FOETUS [None]
  - CLEFT PALATE [None]
  - CONGENITAL HAND MALFORMATION [None]
  - DYSMORPHISM [None]
  - CONGENITAL EYE DISORDER [None]
  - NIPPLE DISORDER [None]
  - LIP DISORDER [None]
  - FOETAL ALCOHOL SYNDROME [None]
  - EXTERNAL EAR DISORDER [None]
